FAERS Safety Report 7265066-2 (Version None)
Quarter: 2011Q1

REPORT INFORMATION
  Report Type: 
  Country: None (occurrence: None)
  Receive Date: 20110131
  Receipt Date: 20110120
  Transmission Date: 20110831
  Serious: Yes (Death, Life-Threatening, Hospitalization)
  Sender: FDA-Public Use
  Company Number: NL-EISAI INC-E7389-00949-CLI-NL

PATIENT
  Sex: Female
  Weight: 59 kg

DRUGS (5)
  1. RIFAMPICIN [Suspect]
     Dates: start: 20100421, end: 20100502
  2. HYDROCHLOROTHIAZIDE [Concomitant]
     Indication: HYPERTENSION
     Route: 048
     Dates: start: 20100201
  3. OXAZEPAM [Concomitant]
     Indication: SLEEP DISORDER
     Dosage: UNKNOWN
     Route: 048
     Dates: start: 20100201
  4. E7389 (BOLD) [Suspect]
     Route: 041
     Dates: start: 20100413, end: 20100427
  5. MAGNESIUM OXIDE [Concomitant]
     Indication: PROPHYLAXIS
     Dosage: UNKNOWN
     Route: 048
     Dates: start: 20100201

REACTIONS (2)
  - GASTRIC HAEMORRHAGE [None]
  - ABDOMINAL PAIN [None]
